FAERS Safety Report 7799723-6 (Version None)
Quarter: 2011Q4

REPORT INFORMATION
  Report Type: 
  Country: None (occurrence: None)
  Receive Date: 20111006
  Receipt Date: 20110922
  Transmission Date: 20120403
  Serious: Yes (Life-Threatening, Hospitalization)
  Sender: FDA-Public Use
  Company Number: US-SANOFI-AVENTIS-2011SA063563

PATIENT
  Age: 16 Year
  Sex: Female

DRUGS (23)
  1. ONDANSETRON HCL [Suspect]
     Route: 048
  2. TOBRAMYCIN [Suspect]
     Indication: ECTHYMA
     Route: 065
  3. FUROSEMIDE [Suspect]
     Indication: BLOOD CREATININE INCREASED
     Route: 065
  4. CEFEPIME [Concomitant]
     Route: 051
  5. PANTOPRAZOLE [Concomitant]
     Route: 065
  6. AMOXICILLIN [Concomitant]
     Route: 065
  7. MERCAPTOPURINE [Suspect]
     Route: 065
  8. VANCOMYCIN [Suspect]
     Indication: ECTHYMA
     Route: 065
  9. DIPHENHYDRAMINE HCL [Concomitant]
     Route: 048
  10. CLARITHROMYCIN [Suspect]
     Route: 065
  11. VINCRISTINE [Suspect]
     Route: 065
  12. CEFEPIME [Concomitant]
     Indication: PSEUDOMONAS INFECTION
     Route: 065
  13. CEFEPIME [Concomitant]
     Route: 051
  14. AMOXICILLIN [Concomitant]
     Route: 048
  15. CEFEPIME [Concomitant]
     Indication: ECTHYMA
     Route: 065
  16. ONDANSETRON HCL [Suspect]
     Route: 065
  17. PANTOPRAZOLE [Concomitant]
     Route: 048
  18. METRONIDAZOLE [Concomitant]
     Route: 048
  19. LORAZEPAM [Concomitant]
     Route: 065
  20. ASPARAGINASE [Suspect]
     Route: 065
  21. CYTARABINE [Suspect]
     Route: 065
  22. SULFAMETHOXAZOLE AND TRIMETHOPRIM [Concomitant]
     Route: 048
  23. HYDROXYZINE [Concomitant]
     Route: 048

REACTIONS (21)
  - HEADACHE [None]
  - RENAL TUBULAR NECROSIS [None]
  - HYPOMAGNESAEMIA [None]
  - UNRESPONSIVE TO STIMULI [None]
  - CHROMATURIA [None]
  - HYPOKALAEMIA [None]
  - FEELING JITTERY [None]
  - ABDOMINAL PAIN [None]
  - VENTRICULAR TACHYCARDIA [None]
  - CHEST DISCOMFORT [None]
  - BLOOD CREATININE INCREASED [None]
  - TORSADE DE POINTES [None]
  - VENTRICULAR FIBRILLATION [None]
  - RENAL IMPAIRMENT [None]
  - ANXIETY [None]
  - PULSE ABSENT [None]
  - NAUSEA [None]
  - MALAISE [None]
  - CARDIAC ARREST [None]
  - ELECTROCARDIOGRAM QT PROLONGED [None]
  - URINE OUTPUT DECREASED [None]
